FAERS Safety Report 4926774-9 (Version None)
Quarter: 2006Q1

REPORT INFORMATION
  Report Type: 
  Country: None (occurrence: None)
  Receive Date: 20060228
  Receipt Date: 20050613
  Transmission Date: 20060701
  Serious: No
  Sender: FDA-Public Use
  Company Number: US-GLAXOSMITHKLINE-A0562389A

PATIENT
  Age: 34 Year
  Sex: Female

DRUGS (6)
  1. LAMICTAL [Suspect]
     Indication: DEPRESSION
     Dosage: 100MG PER DAY
     Route: 048
     Dates: start: 20050511
  2. XANAX [Concomitant]
     Route: 065
  3. PROZAC [Concomitant]
  4. ADDERALL 10 [Concomitant]
     Route: 065
  5. IMITREX [Concomitant]
  6. TYLENOL (CAPLET) [Concomitant]

REACTIONS (1)
  - CONTUSION [None]
